FAERS Safety Report 5968330-X (Version None)
Quarter: 2008Q4

REPORT INFORMATION
  Report Type: 
  Country: None (occurrence: None)
  Receive Date: 20081121
  Receipt Date: 20081121
  Transmission Date: 20090506
  Serious: Yes (Hospitalization)
  Sender: FDA-Public Use
  Company Number: None

PATIENT
  Sex: Male

DRUGS (2)
  1. CRESTOR [Suspect]
     Indication: HYPERLIPIDAEMIA
     Dosage: 40MG DAILY PO
     Route: 048
     Dates: start: 20080813, end: 20081114
  2. COLCHICINE 0.6MG [Suspect]
     Indication: GOUT
     Dosage: 0.6MG TO 1.2 MG EVERY 2 HOURS PO
     Route: 048
     Dates: start: 20081103, end: 20081114

REACTIONS (2)
  - DIZZINESS [None]
  - RHABDOMYOLYSIS [None]
